FAERS Safety Report 9378597 (Version 1)
Quarter: 2013Q3

REPORT INFORMATION
  Report Type: Report from Study
  Country: CA (occurrence: CA)
  Receive Date: 20130702
  Receipt Date: 20130702
  Transmission Date: 20140515
  Serious: Yes (Hospitalization, Other)
  Sender: FDA-Public Use
  Company Number: CA-ROCHE-1242309

PATIENT
  Age: 58 Year
  Sex: Female
  Weight: 66.4 kg

DRUGS (18)
  1. RITUXAN [Suspect]
     Indication: CHRONIC LYMPHOCYTIC LEUKAEMIA
     Route: 042
     Dates: start: 2009, end: 2009
  2. VINCRISTINE [Suspect]
     Indication: CHRONIC LYMPHOCYTIC LEUKAEMIA
     Route: 065
     Dates: start: 2009, end: 200907
  3. CYCLOPHOSPHAMIDE [Suspect]
     Indication: CHRONIC LYMPHOCYTIC LEUKAEMIA
     Route: 065
     Dates: start: 2009, end: 200907
  4. FLUDARABINE [Suspect]
     Indication: CHRONIC LYMPHOCYTIC LEUKAEMIA
     Route: 065
     Dates: start: 200901, end: 200903
  5. DOXORUBICIN [Suspect]
     Indication: CHRONIC LYMPHOCYTIC LEUKAEMIA
     Route: 065
  6. PREDNISOLONE [Suspect]
     Indication: CHRONIC LYMPHOCYTIC LEUKAEMIA
     Route: 065
  7. ACYCLOVIR [Concomitant]
  8. ALENDRONATE [Concomitant]
  9. LYRICA [Concomitant]
  10. WELLBUTRIN [Concomitant]
  11. CRESTOR [Concomitant]
  12. ATIVAN [Concomitant]
     Route: 065
  13. CIPRALEX [Concomitant]
  14. MORPHINE SLOW RELEASE [Concomitant]
  15. PREMARIN [Concomitant]
  16. AMOXICILLIN [Concomitant]
  17. STATEX (CANADA) [Concomitant]
     Route: 065
  18. MEROPENEM [Concomitant]
     Indication: INFECTION PROPHYLAXIS

REACTIONS (7)
  - Necrosis [Unknown]
  - Bone marrow transplant [Unknown]
  - Full blood count decreased [Unknown]
  - Cataract [Recovered/Resolved]
  - No therapeutic response [Unknown]
  - Graft versus host disease [Not Recovered/Not Resolved]
  - Wound [Not Recovered/Not Resolved]
